FAERS Safety Report 9931335 (Version 3)
Quarter: 2014Q2

REPORT INFORMATION
  Report Type: Report from Study
  Country: DE (occurrence: DE)
  Receive Date: 20140228
  Receipt Date: 20140609
  Transmission Date: 20141212
  Serious: Yes (Hospitalization)
  Sender: FDA-Public Use
  Company Number: DE-ROCHE-1350910

PATIENT
  Age: 58 Year
  Sex: Female
  Weight: 56.1 kg

DRUGS (2)
  1. TRASTUZUMAB [Suspect]
     Indication: LUNG NEOPLASM MALIGNANT
     Route: 042
     Dates: start: 20140123
  2. TRASTUZUMAB [Suspect]
     Dosage: DOSE REDUCED
     Route: 042

REACTIONS (1)
  - Syncope [Recovered/Resolved]
